FAERS Safety Report 13428346 (Version 1)
Quarter: 2017Q2

REPORT INFORMATION
  Report Type: Spontaneous
  Country: FR (occurrence: FR)
  Receive Date: 20170411
  Receipt Date: 20170411
  Transmission Date: 20170830
  Serious: Yes (Hospitalization)
  Sender: FDA-Public Use
  Company Number: FR-ROCHE-1914027

PATIENT
  Age: 69 Year
  Sex: Male

DRUGS (7)
  1. COTELLIC [Suspect]
     Active Substance: COBIMETINIB
     Indication: ERDHEIM-CHESTER DISEASE
     Route: 048
     Dates: start: 20161223
  2. DIFFU-K [Concomitant]
     Active Substance: POTASSIUM CHLORIDE
  3. AMLODIPINE [Concomitant]
     Active Substance: AMLODIPINE BESYLATE
  4. COTELLIC [Suspect]
     Active Substance: COBIMETINIB
     Route: 048
     Dates: start: 20170322
  5. DACOGEN [Concomitant]
     Active Substance: DECITABINE
     Indication: ACUTE MYELOID LEUKAEMIA
     Route: 042
     Dates: start: 20170203, end: 20170317
  6. LANSOPRAZOLE. [Concomitant]
     Active Substance: LANSOPRAZOLE
  7. HYDROCORTISONE. [Concomitant]
     Active Substance: HYDROCORTISONE

REACTIONS (4)
  - Haematuria [Recovering/Resolving]
  - Off label use [Unknown]
  - Rectal haemorrhage [Recovering/Resolving]
  - Epistaxis [Recovering/Resolving]

NARRATIVE: CASE EVENT DATE: 201702
